FAERS Safety Report 14127812 (Version 1)
Quarter: 2017Q4

REPORT INFORMATION
  Report Type: Spontaneous
  Country: US (occurrence: US)
  Receive Date: 20171026
  Receipt Date: 20171026
  Transmission Date: 20180321
  Serious: No
  Sender: FDA-Public Use
  Company Number: US-PFIZER INC-2017458584

PATIENT
  Sex: Female
  Weight: 63.5 kg

DRUGS (2)
  1. FASLODEX [Concomitant]
     Active Substance: FULVESTRANT
     Indication: BREAST CANCER
     Dosage: 500MG (2 SHOTS DOSAGE)
     Dates: start: 20170123
  2. IBRANCE [Suspect]
     Active Substance: PALBOCICLIB
     Indication: BREAST CANCER
     Dosage: 125 MG, ONE CAPSULE BY MOUTH DAILY FROM DAY 1 TO 21 , EVERY 28 DAYS
     Route: 048

REACTIONS (1)
  - Asthenia [Unknown]
